FAERS Safety Report 9349873 (Version 2)
Quarter: 2013Q2

REPORT INFORMATION
  Report Type: Spontaneous
  Country: US (occurrence: None)
  Receive Date: 20130611
  Receipt Date: 20130627
  Transmission Date: 20140414
  Serious: Yes (Death, Other)
  Sender: FDA-Public Use
  Company Number: ZYD-13-AE-151

PATIENT
  Age: 75 Year
  Sex: Male

DRUGS (10)
  1. AMIODARONE [Suspect]
     Indication: ARRHYTHMIA
     Route: 048
     Dates: start: 20101112, end: 20110202
  2. SIMCOR [Concomitant]
  3. DOXAZOSIN [Concomitant]
  4. LIBRUM [Concomitant]
  5. OMEGA-3 [Concomitant]
  6. ACTOS PLUS [Concomitant]
  7. OMEPRAZOLE [Concomitant]
  8. ASPIRIN [Concomitant]
  9. PHENERGAN [Concomitant]
  10. DARVOCET [Concomitant]

REACTIONS (2)
  - Balance disorder [None]
  - Chronic obstructive pulmonary disease [None]
